FAERS Safety Report 24984524 (Version 1)
Quarter: 2025Q1

REPORT INFORMATION
  Report Type: Spontaneous
  Country: US (occurrence: US)
  Receive Date: 20250219
  Receipt Date: 20250219
  Transmission Date: 20250408
  Serious: No
  Sender: VALIDUS
  Company Number: US-VALIDUS PHARMACEUTICALS LLC-US-VDP-2024-019431

PATIENT

DRUGS (5)
  1. LASIX [Suspect]
     Active Substance: FUROSEMIDE
     Indication: Product used for unknown indication
     Route: 065
  2. LASIX [Suspect]
     Active Substance: FUROSEMIDE
     Route: 065
  3. LASIX [Suspect]
     Active Substance: FUROSEMIDE
     Route: 065
  4. XALKORI [Suspect]
     Active Substance: CRIZOTINIB
     Indication: Small cell lung cancer
     Dosage: 250MG, TAKES ONE CAPSULE IN MORNING AND ONE CAPSULE IN EVENING, BY MOUTH
     Route: 048
     Dates: start: 202403, end: 20240903
  5. XALKORI [Suspect]
     Active Substance: CRIZOTINIB
     Dosage: 250MG, TAKES ONE CAPSULE IN MORNING AND ONE CAPSULE IN EVENING, BY MOUTH
     Route: 048
     Dates: start: 20240917

REACTIONS (1)
  - Peripheral swelling [Not Recovered/Not Resolved]
